FAERS Safety Report 5480004-0 (Version None)
Quarter: 2007Q4

REPORT INFORMATION
  Report Type: 
  Country: None (occurrence: None)
  Receive Date: 20071008
  Receipt Date: 20070928
  Transmission Date: 20080405
  Serious: Yes (Hospitalization, Other)
  Sender: FDA-Public Use
  Company Number: FR-ABBOTT-07P-056-0418843-00

PATIENT
  Age: 50 Year
  Sex: Male

DRUGS (1)
  1. TARKA [Suspect]
     Indication: HYPERTENSION
     Route: 048

REACTIONS (3)
  - ANGIOEDEMA [None]
  - ARTHROPOD STING [None]
  - LOSS OF CONSCIOUSNESS [None]
